FAERS Safety Report 7009349-X (Version None)
Quarter: 2010Q3

REPORT INFORMATION
  Report Type: 
  Country: None (occurrence: None)
  Receive Date: 20100923
  Receipt Date: 20091026
  Transmission Date: 20110219
  Serious: No
  Sender: FDA-Public Use
  Company Number: US-ABBOTT-09P-163-0605529-00

PATIENT
  Sex: Female
  Weight: 49.94 kg

DRUGS (2)
  1. VICODIN HP [Suspect]
     Indication: BACK INJURY
     Dosage: 10MG/660 MG, 3-5 TAB QD
     Route: 048
     Dates: start: 20000101
  2. DIOVAN [Concomitant]
     Indication: HYPERTENSION
     Route: 048

REACTIONS (2)
  - DIZZINESS [None]
  - NAUSEA [None]
